FAERS Safety Report 10431476 (Version 4)
Quarter: 2014Q4

REPORT INFORMATION
  Report Type: Spontaneous
  Country: JP (occurrence: JP)
  Receive Date: 20140904
  Receipt Date: 20141023
  Transmission Date: 20150528
  Serious: Yes (Hospitalization)
  Sender: FDA-Public Use
  Company Number: JP-B.I. PHARMACEUTICALS,INC./RIDGEFIELD-2014-BI-36002NB

PATIENT
  Age: 69 Year
  Sex: Male
  Weight: 56.9 kg

DRUGS (14)
  1. OSPAIN [Concomitant]
     Active Substance: ETODOLAC
     Indication: PAIN
     Dosage: 400 MG
     Route: 048
     Dates: start: 20140626
  2. CALONAL [Concomitant]
     Active Substance: ACETAMINOPHEN
     Indication: PAIN
     Dosage: 2400 MG
     Route: 048
     Dates: start: 20140626, end: 20140710
  3. GILOTRIF [Suspect]
     Active Substance: AFATINIB
     Route: 048
     Dates: start: 20140819, end: 20140821
  4. FENTOS [Concomitant]
     Active Substance: FENTANYL
     Indication: PAIN
     Dosage: 2 MG
     Route: 062
     Dates: start: 20140708
  5. GILOTRIF [Suspect]
     Active Substance: AFATINIB
     Route: 048
     Dates: start: 20140729, end: 20140804
  6. GILOTRIF [Suspect]
     Active Substance: AFATINIB
     Route: 048
     Dates: start: 20140812, end: 20140813
  7. RABEPRAZOLE NA [Concomitant]
     Indication: ABDOMINAL PAIN UPPER
     Dosage: 10 MG
     Route: 048
     Dates: start: 20140626
  8. AMITIZA [Concomitant]
     Active Substance: LUBIPROSTONE
     Indication: CONSTIPATION
     Dosage: 48 MG
     Route: 048
     Dates: start: 20140703
  9. OXINORM [Concomitant]
     Active Substance: OXYCODONE HYDROCHLORIDE
     Indication: PAIN
     Dosage: 2.5 MG
     Route: 048
     Dates: start: 20140626
  10. HERBAL NOS [Concomitant]
     Active Substance: HERBALS
     Indication: DECREASED APPETITE
     Dosage: 7.5 G
     Route: 048
     Dates: start: 20140703, end: 20140708
  11. GILOTRIF [Suspect]
     Active Substance: AFATINIB
     Indication: LUNG ADENOCARCINOMA
     Dosage: 40 MG
     Route: 048
     Dates: start: 20140709, end: 20140723
  12. NOVAMIN [Concomitant]
     Active Substance: PROCHLORPERAZINE MALEATE
     Indication: VOMITING
     Dosage: 15 MG
     Route: 048
     Dates: start: 20140704, end: 20140718
  13. PRIMPERAN [Concomitant]
     Active Substance: METOCLOPRAMIDE HYDROCHLORIDE
     Indication: VOMITING
     Dosage: 5 MG
     Route: 048
     Dates: start: 20140703
  14. CONTOMIN [Concomitant]
     Active Substance: CHLORPROMAZINE
     Indication: REGURGITATION
     Dosage: 12.5 MG
     Route: 048
     Dates: start: 20140711, end: 20140714

REACTIONS (1)
  - Duodenitis [Recovered/Resolved]

NARRATIVE: CASE EVENT DATE: 20140714
